FAERS Safety Report 9647173 (Version 1)
Quarter: 2013Q4

REPORT INFORMATION
  Report Type: Spontaneous
  Country: US (occurrence: US)
  Receive Date: 20131027
  Receipt Date: 20131027
  Transmission Date: 20140711
  Serious: No
  Sender: FDA-Public Use
  Company Number: US-PURDUE-USA-2013-0105342

PATIENT
  Sex: Female

DRUGS (1)
  1. OXYCONTIN (NDA 22-272) [Suspect]
     Indication: PAIN
     Dosage: 20 MG, BID
     Route: 048
     Dates: end: 201307

REACTIONS (6)
  - Drug effect increased [Unknown]
  - Presyncope [Recovered/Resolved]
  - Somnolence [Unknown]
  - Fatigue [Unknown]
  - Inadequate analgesia [Unknown]
  - Drug ineffective [Not Recovered/Not Resolved]
